FAERS Safety Report 4393724-6 (Version None)
Quarter: 2004Q3

REPORT INFORMATION
  Report Type: 
  Country: None (occurrence: None)
  Receive Date: 20040701
  Receipt Date: 20040617
  Transmission Date: 20050211
  Serious: Yes (Hospitalization)
  Sender: FDA-Public Use
  Company Number: 04P-028-0262326-00

PATIENT
  Age: 16 Year
  Sex: Female
  Weight: 113.4 kg

DRUGS (2)
  1. EPIVAL (DEPAKOTE) (DIVALPROEX SODIUM) (DIVALPROEX SODIUM) [Suspect]
     Indication: EPILEPSY
     Dosage: 1125 MG, 500 MG TWO TIMES DAILY, 125 MG AT NIGHT, PER ORAL
     Route: 048
  2. CLOBAZAM [Concomitant]

REACTIONS (7)
  - BLOOD 25-HYDROXYCHOLECALCIFEROL DECREASED [None]
  - BLOOD PARATHYROID HORMONE INCREASED [None]
  - HYPERPHOSPHATAEMIA [None]
  - HYPOALBUMINAEMIA [None]
  - HYPOCALCAEMIA [None]
  - HYPOMAGNESAEMIA [None]
  - OEDEMA PERIPHERAL [None]
